FAERS Safety Report 4885760-8 (Version None)
Quarter: 2006Q1

REPORT INFORMATION
  Report Type: 
  Country: None (occurrence: None)
  Receive Date: 20060117
  Receipt Date: 20060113
  Transmission Date: 20060701
  Serious: Yes (Hospitalization, Disabling)
  Sender: FDA-Public Use
  Company Number: 2006002658

PATIENT
  Age: 47 Year
  Sex: Male

DRUGS (3)
  1. PHENYTOIN SODIUM [Suspect]
     Indication: EPILEPSY
     Dosage: 1200 MG (600 MG, 2 IN 1 D), ORAL
     Route: 048
     Dates: end: 20051209
  2. GABAPENTIN [Concomitant]
  3. AMITRIPTYLINE HCL [Concomitant]

REACTIONS (6)
  - CEREBELLAR ATAXIA [None]
  - CEREBELLAR SYNDROME [None]
  - DYSARTHRIA [None]
  - DYSSTASIA [None]
  - NYSTAGMUS [None]
  - TREMOR [None]
